FAERS Safety Report 7048440-9 (Version None)
Quarter: 2010Q4

REPORT INFORMATION
  Report Type: 
  Country: None (occurrence: None)
  Receive Date: 20101015
  Receipt Date: 20101013
  Transmission Date: 20110411
  Serious: Yes (Death)
  Sender: FDA-Public Use
  Company Number: KR-MERCK-1010KOR00032

PATIENT

DRUGS (2)
  1. CANCIDAS [Suspect]
     Indication: PYREXIA
     Route: 065
     Dates: start: 20100101, end: 20100101
  2. FLUCONAZOLE [Concomitant]
     Indication: PYREXIA
     Route: 065
     Dates: start: 20100101

REACTIONS (3)
  - DEATH [None]
  - DRUG INEFFECTIVE [None]
  - ORAL DISCOMFORT [None]
